FAERS Safety Report 14818834 (Version 1)
Quarter: 2018Q2

REPORT INFORMATION
  Report Type: Spontaneous
  Country: JP (occurrence: JP)
  Receive Date: 20180427
  Receipt Date: 20180427
  Transmission Date: 20180711
  Serious: Yes (Other)
  Sender: FDA-Public Use
  Company Number: JP-TEVA-2018-JP-887158

PATIENT
  Age: 54 Year
  Sex: Female

DRUGS (3)
  1. RISEDRONATE SODIUM. [Suspect]
     Active Substance: RISEDRONATE SODIUM
     Indication: PRODUCT USED FOR UNKNOWN INDICATION
     Route: 048
  2. PREDNISOLONE. [Concomitant]
     Active Substance: PREDNISOLONE
     Route: 065
  3. WARFARIN POTASSIUM [Concomitant]
     Active Substance: WARFARIN POTASSIUM
     Route: 065

REACTIONS (7)
  - Periodontitis [Unknown]
  - Bone disorder [Unknown]
  - Osteonecrosis of jaw [Not Recovered/Not Resolved]
  - Fistula [Unknown]
  - Paralysis [Recovering/Resolving]
  - Neurosis [Not Recovered/Not Resolved]
  - Oral pain [Unknown]

NARRATIVE: CASE EVENT DATE: 201702
